FAERS Safety Report 5907277-1 (Version None)
Quarter: 2008Q4

REPORT INFORMATION
  Report Type: 
  Country: None (occurrence: None)
  Receive Date: 20081003
  Receipt Date: 20080926
  Transmission Date: 20090506
  Serious: Yes (Other)
  Sender: FDA-Public Use
  Company Number: PHHY2008JP22917

PATIENT
  Age: 60 Year
  Sex: Female

DRUGS (5)
  1. NEORAL [Suspect]
     Indication: DERMATITIS ATOPIC
     Dosage: 125 MG/DAY
     Route: 048
     Dates: start: 20080522, end: 20080525
  2. CONTOL [Concomitant]
     Dosage: 80 MG, UNK
     Route: 048
     Dates: start: 20080529
  3. CELESTAMINE    /00252801/ [Concomitant]
     Dosage: 4 TABLETS/DAY
     Route: 048
     Dates: start: 20080529
  4. CELESTAMINE    /00252801/ [Concomitant]
     Dosage: 3 TABLETS/DAY
  5. CELESTAMINE    /00252801/ [Concomitant]
     Dosage: 2 TABLETS/DAY
     Dates: end: 20080609

REACTIONS (4)
  - CYSTITIS-LIKE SYMPTOM [None]
  - DERMATITIS EXFOLIATIVE [None]
  - OEDEMA [None]
  - PALPITATIONS [None]
